FAERS Safety Report 4318392-0 (Version None)
Quarter: 2004Q1

REPORT INFORMATION
  Report Type: 
  Country: None (occurrence: None)
  Receive Date: 20040315
  Receipt Date: 20040303
  Transmission Date: 20041129
  Serious: Yes (Death, Hospitalization)
  Sender: FDA-Public Use
  Company Number: DE-JNJFOC-20040301472

PATIENT
  Age: 46 Year
  Sex: Male

DRUGS (7)
  1. HALDOL [Suspect]
     Dosage: 16 MG, 1 IN 1 DAY, ORAL
     Route: 048
     Dates: start: 20040206, end: 20040208
  2. CLEXANE (HEPARIN-FRACTION, SODIUM SALT) [Concomitant]
  3. ROCEPHIN [Concomitant]
  4. CIPROFLOXACIN [Concomitant]
  5. LASIX [Concomitant]
  6. FAUSTIN (DIAZEPAM) [Concomitant]
  7. VALPROATE SODIUM [Concomitant]

REACTIONS (5)
  - HAEMATOCRIT DECREASED [None]
  - NEOPLASM [None]
  - PATIENT RESTRAINT [None]
  - PLATELET COUNT DECREASED [None]
  - PULMONARY EMBOLISM [None]
